FAERS Safety Report 13621336 (Version 2)
Quarter: 2017Q3

REPORT INFORMATION
  Report Type: Spontaneous
  Country: US (occurrence: US)
  Receive Date: 20170607
  Receipt Date: 20170825
  Transmission Date: 20171127
  Serious: No
  Sender: FDA-Public Use
  Company Number: US-PFIZER INC-2017244351

PATIENT
  Age: 51 Year
  Sex: Male
  Weight: 61.23 kg

DRUGS (6)
  1. VFEND [Suspect]
     Active Substance: VORICONAZOLE
     Indication: NOCARDIOSIS
     Dosage: 200 MG, 2X/DAY
     Route: 048
     Dates: start: 20170503, end: 20170526
  2. MOXIFLOXACIN. [Suspect]
     Active Substance: MOXIFLOXACIN
     Indication: COCCIDIOIDOMYCOSIS
     Dosage: 400 MG, 1X/DAY
     Route: 048
     Dates: start: 20170517, end: 20170526
  3. VFEND [Suspect]
     Active Substance: VORICONAZOLE
     Indication: COCCIDIOIDOMYCOSIS
     Dosage: 200 MG, 2X/DAY
     Route: 048
     Dates: start: 20170101, end: 20170419
  4. MOXIFLOXACIN. [Suspect]
     Active Substance: MOXIFLOXACIN
     Indication: NOCARDIOSIS
     Dosage: 400 MG, 1X/DAY
     Route: 048
     Dates: start: 20170317, end: 20170419
  5. BACTRIM [Suspect]
     Active Substance: SULFAMETHOXAZOLE\TRIMETHOPRIM
     Indication: COCCIDIOIDOMYCOSIS
  6. BACTRIM [Suspect]
     Active Substance: SULFAMETHOXAZOLE\TRIMETHOPRIM
     Indication: NOCARDIOSIS
     Dosage: 1 DF, 3X/DAY
     Route: 048
     Dates: start: 20170317

REACTIONS (4)
  - Product use in unapproved indication [Unknown]
  - Dermatitis [Recovered/Resolved]
  - Blister [Not Recovered/Not Resolved]
  - Rash [Recovered/Resolved]

NARRATIVE: CASE EVENT DATE: 201704
